FAERS Safety Report 7396342-0 (Version None)
Quarter: 2011Q2

REPORT INFORMATION
  Report Type: 
  Country: None (occurrence: None)
  Receive Date: 20110406
  Receipt Date: 20110329
  Transmission Date: 20111010
  Serious: Yes (Hospitalization, Other)
  Sender: FDA-Public Use
  Company Number: US-US-EMD SERONO, INC.-7036094

PATIENT
  Sex: Male

DRUGS (2)
  1. REBIF [Suspect]
     Indication: MULTIPLE SCLEROSIS
     Route: 058
     Dates: start: 20090323, end: 20110313
  2. UNSPECIFIED MEDICATIONS TOO MANY TO LIST [Concomitant]

REACTIONS (15)
  - CONFUSIONAL STATE [None]
  - LOBAR PNEUMONIA [None]
  - SPEECH DISORDER [None]
  - HYPOTHERMIA [None]
  - ANAEMIA [None]
  - DEHYDRATION [None]
  - WOUND [None]
  - URINARY TRACT INFECTION [None]
  - SEPSIS [None]
  - THROMBOCYTOPENIA [None]
  - NASOPHARYNGITIS [None]
  - THERMAL BURN [None]
  - GAIT DISTURBANCE [None]
  - CONVULSION [None]
  - MUSCLE RIGIDITY [None]
